FAERS Safety Report 7472417-2 (Version None)
Quarter: 2011Q2

REPORT INFORMATION
  Report Type: 
  Country: None (occurrence: None)
  Receive Date: 20110511
  Receipt Date: 20110504
  Transmission Date: 20111010
  Serious: Yes (Other)
  Sender: FDA-Public Use
  Company Number: US-B.I. PHARMACEUTICALS,INC./RIDGEFIELD-2011-BP-09528PF

PATIENT
  Sex: Female
  Weight: 77.1 kg

DRUGS (8)
  1. CELEBREX [Suspect]
     Indication: ARTHRITIS
     Dosage: 200 MG
     Route: 048
  2. NEXIUM [Suspect]
     Indication: GASTRIC DISORDER
     Dosage: 80 MG
  3. PRISTIQ [Suspect]
     Indication: DEPRESSION
     Dosage: 50 MG
     Route: 048
     Dates: start: 20110301
  4. SPIRIVA [Suspect]
     Indication: CHRONIC OBSTRUCTIVE PULMONARY DISEASE
     Route: 055
  5. LISINOPRIL [Suspect]
     Indication: HYPERTENSION
     Dosage: 10 MG
  6. FENTANYL [Suspect]
     Indication: BACK PAIN
     Route: 062
  7. NITROFURANTOIN [Suspect]
     Indication: BLADDER DISORDER
     Dosage: 50 MG
  8. LACTULOSE [Suspect]
     Indication: CONSTIPATION

REACTIONS (2)
  - RASH [None]
  - DRUG INTERACTION [None]
